FAERS Safety Report 6218645-5 (Version None)
Quarter: 2009Q2

REPORT INFORMATION
  Report Type: 
  Country: None (occurrence: None)
  Receive Date: 20090608
  Receipt Date: 20090528
  Transmission Date: 20091009
  Serious: Yes (Death)
  Sender: FDA-Public Use
  Company Number: US-NOVOPROD-287853

PATIENT

DRUGS (1)
  1. NOVOLOG [Suspect]
     Indication: WRONG DRUG ADMINISTERED
     Dosage: UNKNOWN

REACTIONS (2)
  - DEATH [None]
  - WRONG DRUG ADMINISTERED [None]
